FAERS Safety Report 19975716 (Version 2)
Quarter: 2021Q4

REPORT INFORMATION
  Report Type: Report from Study
  Country: US (occurrence: US)
  Receive Date: 20211021
  Receipt Date: 20211102
  Transmission Date: 20220303
  Serious: Yes (Death, Other)
  Sender: FDA-Public Use
  Company Number: US-ACADIA PHARMACEUTICALS INC.-ACA-2021-PIM-003436

PATIENT
  Age: 82 Year
  Sex: Male

DRUGS (4)
  1. NUPLAZID [Suspect]
     Active Substance: PIMAVANSERIN TARTRATE
     Indication: Parkinson^s disease psychosis
     Dosage: 34 MILLIGRAM, QD
     Route: 048
     Dates: start: 20210917
  2. NUPLAZID [Suspect]
     Active Substance: PIMAVANSERIN TARTRATE
     Indication: Delusion
  3. NUPLAZID [Suspect]
     Active Substance: PIMAVANSERIN TARTRATE
     Indication: Hallucination
  4. BD PEN MINI MIS [Concomitant]

REACTIONS (9)
  - Death [Fatal]
  - Insomnia [Unknown]
  - Screaming [Unknown]
  - Obsessive thoughts [Unknown]
  - Abnormal behaviour [Unknown]
  - Energy increased [Unknown]
  - Therapeutic response unexpected [Unknown]
  - Hallucination [Unknown]
  - Agitation [Unknown]

NARRATIVE: CASE EVENT DATE: 20210901
